FAERS Safety Report 8613339-0 (Version None)
Quarter: 2012Q3

REPORT INFORMATION
  Report Type: 
  Country: None (occurrence: None)
  Receive Date: 20120822
  Receipt Date: 20120614
  Transmission Date: 20120928
  Serious: Yes (Hospitalization, Other)
  Sender: FDA-Public Use
  Company Number: JP-009507513-1208JPN006948

PATIENT

DRUGS (12)
  1. REBETOL [Suspect]
     Dosage: 400 MG, ONCE
     Route: 048
     Dates: start: 20120501, end: 20120521
  2. REBETOL [Suspect]
     Route: 048
     Dates: start: 20120522, end: 20120525
  3. TELAVIC [Suspect]
     Route: 048
     Dates: start: 20120413, end: 20120525
  4. PEG-INTRON [Suspect]
     Dosage: 1.5MCG/KG/WEEK
     Route: 058
     Dates: start: 20120619
  5. REBETOL [Suspect]
     Route: 048
     Dates: start: 20120619
  6. TELAVIC [Suspect]
     Indication: HEPATITIS C
     Dosage: 2250 MG, ONCE
     Route: 048
     Dates: start: 20120410, end: 20120412
  7. REBETOL [Suspect]
     Indication: HEPATITIS C
     Dosage: 600 MG, ONCE
     Route: 048
     Dates: start: 20120410, end: 20120430
  8. JANUVIA [Concomitant]
     Dosage: 50 MG, ONCE
     Route: 048
  9. PEG-INTRON [Suspect]
     Indication: HEPATITIS C
     Dosage: 1.5MCG/KG/WEEK
     Route: 058
     Dates: start: 20120410, end: 20120525
  10. NORVASC [Concomitant]
     Indication: HYPERTENSION
     Dosage: 25 MG, ONCE
     Route: 048
  11. LANSOPRAZOLE [Concomitant]
     Indication: GASTROOESOPHAGEAL REFLUX DISEASE
     Dosage: 15 MG, ONCE
     Route: 048
  12. METFORMIN HCL [Concomitant]
     Indication: DIABETES MELLITUS
     Dosage: 500 MG, ONCE
     Route: 048

REACTIONS (2)
  - ANAEMIA [None]
  - LOSS OF CONSCIOUSNESS [None]
